FAERS Safety Report 12467094 (Version 1)
Quarter: 2016Q2

REPORT INFORMATION
  Report Type: Spontaneous
  Country: US (occurrence: None)
  Receive Date: 20160614
  Receipt Date: 20160614
  Transmission Date: 20160815
  Serious: Yes (Life-Threatening)
  Sender: FDA-Public Use
  Company Number: None

PATIENT
  Age: 63 Year
  Sex: Male
  Weight: 74.84 kg

DRUGS (2)
  1. BACLOFEN, 10 MG [Suspect]
     Active Substance: BACLOFEN
     Indication: DYSTONIA
     Route: 048
     Dates: start: 20160314, end: 20160413
  2. ONE A DAY MULTI-VITAMIN WITH MINERALS PLUS GINSENG [Concomitant]

REACTIONS (12)
  - Asthenia [None]
  - Insomnia [None]
  - Quality of life decreased [None]
  - Hallucination [None]
  - Confusional state [None]
  - Hypophagia [None]
  - Disorientation [None]
  - Feeling abnormal [None]
  - Depression [None]
  - Decreased interest [None]
  - Irritability [None]
  - Palpitations [None]

NARRATIVE: CASE EVENT DATE: 20160314
